FAERS Safety Report 10396128 (Version 2)
Quarter: 2014Q3

REPORT INFORMATION
  Report Type: Spontaneous
  Country: US (occurrence: US)
  Receive Date: 20140820
  Receipt Date: 20140820
  Transmission Date: 20150326
  Serious: No
  Sender: FDA-Public Use
  Company Number: US-HORIZON-DUE-0043-2014

PATIENT
  Age: 66 Year
  Sex: Female

DRUGS (2)
  1. DUEXIS [Suspect]
     Active Substance: FAMOTIDINE\IBUPROFEN
     Indication: FASCIITIS
     Dosage: 800MG/26.6MG
  2. AMBIEN [Interacting]
     Active Substance: ZOLPIDEM TARTRATE
     Dates: start: 2004

REACTIONS (2)
  - Amnesia [Recovered/Resolved]
  - Drug interaction [Recovered/Resolved]

NARRATIVE: CASE EVENT DATE: 20140717
